FAERS Safety Report 25821218 (Version 1)
Quarter: 2025Q3

REPORT INFORMATION
  Report Type: Spontaneous
  Country: CN (occurrence: CN)
  Receive Date: 20250919
  Receipt Date: 20250919
  Transmission Date: 20251021
  Serious: No
  Sender: ALKEM
  Company Number: CN-ALKEM LABORATORIES LIMITED-CN-ALKEM-2025-09114

PATIENT
  Age: 49 Year
  Sex: Female

DRUGS (1)
  1. BREXPIPRAZOLE [Suspect]
     Active Substance: BREXPIPRAZOLE
     Indication: Product used for unknown indication
     Route: 048

REACTIONS (4)
  - Electrocardiogram abnormal [Unknown]
  - Blood uric acid increased [Recovered/Resolved]
  - Blood triglycerides increased [Recovered/Resolved]
  - Blood creatine phosphokinase increased [Recovered/Resolved]
